FAERS Safety Report 24566001 (Version 1)
Quarter: 2024Q4

REPORT INFORMATION
  Report Type: Spontaneous
  Country: FR (occurrence: FR)
  Receive Date: 20241030
  Receipt Date: 20241030
  Transmission Date: 20250115
  Serious: Yes (Other)
  Sender: B BRAUN
  Company Number: FR-B.Braun Medical Inc.-2164124

PATIENT
  Age: 78 Year
  Sex: Male
  Weight: 69 kg

DRUGS (7)
  1. CEFOXITIN AND DEXTROSE [Suspect]
     Active Substance: CEFOXITIN SODIUM
     Indication: Infection prophylaxis
  2. PROPOFOL [Suspect]
     Active Substance: PROPOFOL
  3. ACETAMINOPHEN [Suspect]
     Active Substance: ACETAMINOPHEN
  4. LINEZOLID [Suspect]
     Active Substance: LINEZOLID
  5. PIPERACILLIN SODIUM\TAZOBACTAM SODIUM [Suspect]
     Active Substance: PIPERACILLIN SODIUM\TAZOBACTAM SODIUM
  6. CEFOXITIN [Suspect]
     Active Substance: CEFOXITIN SODIUM
  7. KETAMINE [Suspect]
     Active Substance: KETAMINE

REACTIONS (3)
  - Mixed liver injury [Not Recovered/Not Resolved]
  - Jaundice [Not Recovered/Not Resolved]
  - Hyperbilirubinaemia [Not Recovered/Not Resolved]
